FAERS Safety Report 8811248 (Version 1)
Quarter: 2012Q4

REPORT INFORMATION
  Report Type: 
  Country: US (occurrence: US)
  Receive Date: 20120927
  Receipt Date: 20120927
  Transmission Date: 20130627
  Serious: No
  Sender: FDA-Public Use
  Company Number: PHEH2012US018664

PATIENT
  Sex: Male

DRUGS (2)
  1. TASIGNA [Suspect]
     Indication: LEUKAEMIA
     Dosage: 2 DF, BID
     Route: 048
  2. LEVOTHYROXINE [Concomitant]

REACTIONS (1)
  - Dyspnoea [Unknown]
